FAERS Safety Report 7522218-1 (Version None)
Quarter: 2011Q2

REPORT INFORMATION
  Report Type: 
  Country: None (occurrence: None)
  Receive Date: 20110603
  Receipt Date: 20090316
  Transmission Date: 20111010
  Serious: Yes (Death, Other)
  Sender: FDA-Public Use
  Company Number: US-BAYER-200915515NA

PATIENT
  Age: 76 Year
  Sex: Male
  Weight: 71 kg

DRUGS (9)
  1. LASIX [Concomitant]
     Dosage: 20 MG DAILY
     Route: 048
  2. PROTAMINE SULFATE [Concomitant]
     Dosage: 450 MG
     Route: 042
     Dates: start: 20040223
  3. TRASYLOL [Suspect]
     Indication: AORTIC VALVE REPLACEMENT
     Dosage: INITIAL (TEST) DOSE OF 1 ML
     Route: 042
     Dates: start: 20040223, end: 20040223
  4. HEPARIN [Concomitant]
     Dosage: 25,000 UNITS
     Route: 042
     Dates: start: 20040223
  5. RED BLOOD CELLS [Concomitant]
     Dosage: 1 UNIT
     Dates: start: 20040223
  6. PLASMA [Concomitant]
     Dosage: 2 UNITS
     Dates: start: 20040223
  7. PLATELETS [Concomitant]
     Dosage: 1 UNIT
     Dates: start: 20040223
  8. TRASYLOL [Suspect]
     Indication: CORONARY ARTERY BYPASS
     Dosage: LOADING DOSE OF 200 ML
     Route: 042
     Dates: start: 20040223, end: 20040223
  9. COUMADIN [Concomitant]
     Dosage: 5 MG 4 DAYS 2.5 MG 3 DAYS
     Route: 048

REACTIONS (10)
  - PAIN [None]
  - RENAL FAILURE [None]
  - ANXIETY [None]
  - DEPRESSION [None]
  - FEAR [None]
  - ANHEDONIA [None]
  - DEATH [None]
  - INJURY [None]
  - ADVERSE EVENT [None]
  - CEREBROVASCULAR ACCIDENT [None]
